FAERS Safety Report 13168628 (Version 1)
Quarter: 2017Q1

REPORT INFORMATION
  Report Type: Spontaneous
  Country: US (occurrence: US)
  Receive Date: 20170131
  Receipt Date: 20170131
  Transmission Date: 20170428
  Serious: Yes (Other)
  Sender: FDA-Public Use
  Company Number: US-BRISTOL-MYERS SQUIBB COMPANY-BMS-2017-005966

PATIENT
  Age: 85 Year
  Sex: Female
  Weight: 54.43 kg

DRUGS (1)
  1. ELIQUIS [Suspect]
     Active Substance: APIXABAN
     Indication: CEREBROVASCULAR ACCIDENT PROPHYLAXIS
     Dosage: 2.5 MG, BID
     Route: 048

REACTIONS (7)
  - Fall [Unknown]
  - Lower limb fracture [Recovered/Resolved]
  - Hip fracture [Unknown]
  - Off label use [Unknown]
  - Knee arthroplasty [Unknown]
  - Memory impairment [Unknown]
  - Blood urine present [Unknown]

NARRATIVE: CASE EVENT DATE: 201602
